FAERS Safety Report 14414002 (Version 3)
Quarter: 2018Q1

REPORT INFORMATION
  Report Type: Report from Study
  Country: US (occurrence: US)
  Receive Date: 20180119
  Receipt Date: 20180209
  Transmission Date: 20180509
  Serious: Yes (Other)
  Sender: FDA-Public Use
  Company Number: US-AMGEN-USASP2018005964

PATIENT
  Age: 75 Year
  Sex: Female

DRUGS (2)
  1. REPATHA [Suspect]
     Active Substance: EVOLOCUMAB
     Indication: TYPE IIA HYPERLIPIDAEMIA
     Dosage: 420 MG, UNK
     Route: 065
     Dates: start: 201703
  2. REPATHA [Suspect]
     Active Substance: EVOLOCUMAB
     Indication: BLOOD CHOLESTEROL INCREASED
     Dosage: 140 MG, Q2WK
     Route: 065
     Dates: end: 20180108

REACTIONS (20)
  - Blood pressure decreased [Not Recovered/Not Resolved]
  - Abdominal pain [Unknown]
  - Incontinence [Unknown]
  - Pharyngitis [Unknown]
  - Pain in extremity [Unknown]
  - Joint swelling [Unknown]
  - Myalgia [Recovered/Resolved]
  - Upper respiratory tract infection [Recovered/Resolved]
  - Mobility decreased [Unknown]
  - Bronchitis [Not Recovered/Not Resolved]
  - Pruritus [Recovered/Resolved]
  - Petechiae [Recovering/Resolving]
  - Diarrhoea [Unknown]
  - Arthralgia [Recovered/Resolved]
  - Chest pain [Unknown]
  - Decreased appetite [Unknown]
  - Dry skin [Unknown]
  - Nasopharyngitis [Recovered/Resolved]
  - Fatigue [Recovered/Resolved]
  - Insomnia [Unknown]

NARRATIVE: CASE EVENT DATE: 201801
